FAERS Safety Report 22032222 (Version 1)
Quarter: 2023Q1

REPORT INFORMATION
  Report Type: Spontaneous
  Country: US (occurrence: US)
  Receive Date: 20230224
  Receipt Date: 20230224
  Transmission Date: 20230418
  Serious: No
  Sender: FDA-Public Use
  Company Number: US-JNJFOC-20230215465

PATIENT
  Age: 45 Year
  Sex: Female

DRUGS (1)
  1. WOMENS ROGAINE UNSCENTED [Suspect]
     Active Substance: MINOXIDIL
     Indication: Alopecia
     Dosage: DOSE: HALF A CAP FULL ONCE A DAY IN THE MORNING
     Route: 061
     Dates: start: 202301, end: 2023

REACTIONS (1)
  - Acne cystic [Recovered/Resolved]

NARRATIVE: CASE EVENT DATE: 20230101
